FAERS Safety Report 8307382-9 (Version None)
Quarter: 2012Q2

REPORT INFORMATION
  Report Type: 
  Country: None (occurrence: None)
  Receive Date: 20120424
  Receipt Date: 20120416
  Transmission Date: 20120825
  Serious: Yes (Hospitalization)
  Sender: FDA-Public Use
  Company Number: US-BAYER-2011-122079

PATIENT
  Age: 22 Year
  Sex: Female
  Weight: 72.562 kg

DRUGS (4)
  1. TRISPEC SFX [Concomitant]
     Dosage: UNK
     Route: 048
     Dates: start: 20090722, end: 20110703
  2. YAZ [Suspect]
     Dosage: UNK
     Route: 048
     Dates: start: 20080101, end: 20100101
  3. YASMIN [Suspect]
     Dosage: UNK
     Route: 048
     Dates: start: 20080101, end: 20100101
  4. SEASONIQUE [Concomitant]

REACTIONS (8)
  - GALLBLADDER INJURY [None]
  - MENSTRUAL DISORDER [None]
  - ANHEDONIA [None]
  - CHOLECYSTITIS ACUTE [None]
  - PAIN [None]
  - GENERAL PHYSICAL HEALTH DETERIORATION [None]
  - EMOTIONAL DISTRESS [None]
  - ANXIETY [None]
